FAERS Safety Report 8497452 (Version 5)
Quarter: 2014Q1

REPORT INFORMATION
  Report Type: Spontaneous
  Country: US (occurrence: US)
  Receive Date: 20120406
  Receipt Date: 20140213
  Transmission Date: 20141002
  Serious: Yes (Death, Life-Threatening, Hospitalization)
  Sender: FDA-Public Use
  Company Number: US-JNJFOC-20120401606

PATIENT
  Age: 47 Year
  Sex: Male
  Weight: 87.09 kg

DRUGS (6)
  1. TYLENOL ANALGESIC UNKNOWN [Suspect]
     Route: 065
  2. TYLENOL ANALGESIC UNKNOWN [Suspect]
     Indication: FRACTURE PAIN
     Route: 065
  3. TYLENOL [Suspect]
     Indication: LOWER LIMB FRACTURE
     Route: 048
     Dates: start: 201003, end: 20100312
  4. TYLENOL [Suspect]
     Indication: PAIN
     Route: 048
     Dates: start: 201003, end: 20100312
  5. AMPHETAMINES [Suspect]
     Indication: PRODUCT USED FOR UNKNOWN INDICATION
     Route: 065
  6. ALCOHOL [Suspect]
     Indication: PRODUCT USED FOR UNKNOWN INDICATION
     Route: 065

REACTIONS (13)
  - Renal failure acute [Fatal]
  - Acute hepatic failure [Fatal]
  - Acute hepatic failure [Fatal]
  - Toxicity to various agents [Fatal]
  - Overdose [Fatal]
  - Hypoxia [Fatal]
  - Acute lung injury [Fatal]
  - Coma [Not Recovered/Not Resolved]
  - Coagulopathy [Not Recovered/Not Resolved]
  - Metabolic acidosis [Not Recovered/Not Resolved]
  - Hypoglycaemia [Not Recovered/Not Resolved]
  - Hypotension [Not Recovered/Not Resolved]
  - Cardiopulmonary failure [Fatal]
